FAERS Safety Report 6740593-2 (Version None)
Quarter: 2010Q2

REPORT INFORMATION
  Report Type: 
  Country: None (occurrence: None)
  Receive Date: 20100525
  Receipt Date: 20100512
  Transmission Date: 20101027
  Serious: Yes (Other)
  Sender: FDA-Public Use
  Company Number: AR-WATSON-2010-05759

PATIENT
  Age: 68 Year
  Sex: Female

DRUGS (2)
  1. ALENDRONATE SODIUM [Suspect]
     Indication: OSTEOPOROSIS
     Dosage: 10 MG, DAILY
     Route: 048
     Dates: start: 19930101
  2. ALENDRONATE SODIUM [Suspect]
     Dosage: 70 MG, 1/WEEK
     Route: 048

REACTIONS (2)
  - FEMUR FRACTURE [None]
  - PUBIS FRACTURE [None]
